FAERS Safety Report 14373283 (Version 6)
Quarter: 2018Q3

REPORT INFORMATION
  Report Type: Report from Study
  Country: HK (occurrence: HK)
  Receive Date: 20180110
  Receipt Date: 20180713
  Transmission Date: 20181010
  Serious: Yes (Hospitalization)
  Sender: FDA-Public Use
  Company Number: HK-EXELIXIS-XL18418011905

PATIENT
  Age: 75 Year
  Sex: Female
  Weight: 55 kg

DRUGS (12)
  1. ENTECAVIR. [Concomitant]
     Active Substance: ENTECAVIR
     Indication: HEPATITIS B
     Dosage: UNK
  2. AMLODIPINE BESYLATE. [Concomitant]
     Active Substance: AMLODIPINE BESYLATE
     Indication: HYPERTENSION
  3. HYDROXIZINE HCL [Concomitant]
     Indication: PRURITUS
  4. UREA. [Concomitant]
     Active Substance: UREA
     Indication: RASH
  5. LACTULOSE. [Concomitant]
     Active Substance: LACTULOSE
     Indication: DYSPEPSIA
  6. SPIRONOLACTONE. [Concomitant]
     Active Substance: SPIRONOLACTONE
     Indication: HYPERTENSION
  7. FAMOTIDINE. [Concomitant]
     Active Substance: FAMOTIDINE
     Indication: DYSPEPSIA
  8. MIDAZOLAM MALEATE [Concomitant]
     Active Substance: MIDAZOLAM MALEATE
     Indication: INSOMNIA
  9. AQUEOUS [Concomitant]
     Indication: PALMAR-PLANTAR ERYTHRODYSAESTHESIA SYNDROME
  10. XL184 [Suspect]
     Active Substance: CABOZANTINIB
     Dosage: 40 MG, QD
     Route: 048
     Dates: start: 20180104
  11. PYRIDOXINE HCL [Concomitant]
     Active Substance: PYRIDOXINE HYDROCHLORIDE
     Indication: PALMAR-PLANTAR ERYTHRODYSAESTHESIA SYNDROME
  12. XL184 [Suspect]
     Active Substance: CABOZANTINIB
     Indication: HEPATOCELLULAR CARCINOMA
     Dosage: 60 MG, QD
     Route: 048
     Dates: start: 20171220, end: 20171228

REACTIONS (2)
  - Urinary tract infection [Recovered/Resolved]
  - Hepatic encephalopathy [Recovered/Resolved]

NARRATIVE: CASE EVENT DATE: 20171228
